FAERS Safety Report 5163445-0 (Version None)
Quarter: 2006Q4

REPORT INFORMATION
  Report Type: 
  Country: None (occurrence: None)
  Receive Date: 20061121
  Receipt Date: 20061108
  Transmission Date: 20070319
  Serious: Yes (Hospitalization)
  Sender: FDA-Public Use
  Company Number: 2006132439

PATIENT
  Age: 38 Year
  Sex: Female

DRUGS (1)
  1. NEOSPORIN PLUS PAIN RELIEF MAXIMUM STRENGTH [Suspect]
     Dosage: UNSPECIFIED 2 TO 3 TIMES DAILY
     Dates: start: 20060901

REACTIONS (1)
  - ADVERSE DRUG REACTION [None]
